FAERS Safety Report 24456843 (Version 1)
Quarter: 2024Q4

REPORT INFORMATION
  Report Type: Spontaneous
  Country: US (occurrence: None)
  Receive Date: 20241018
  Receipt Date: 20241018
  Transmission Date: 20250115
  Serious: No
  Sender: ADAMAS PHARMA
  Company Number: US-ARIS GLOBAL-ADM202310-004023

PATIENT
  Age: 77 Year
  Sex: Female

DRUGS (4)
  1. GOCOVRI [Suspect]
     Active Substance: AMANTADINE
     Indication: Parkinson^s disease
     Route: 048
     Dates: start: 20230821, end: 20230928
  2. GOCOVRI [Suspect]
     Active Substance: AMANTADINE
     Dosage: NOT PROVIDED
     Route: 048
     Dates: start: 20231002, end: 20231007
  3. GOCOVRI [Suspect]
     Active Substance: AMANTADINE
     Dosage: NOT PROVIDED
     Route: 048
     Dates: start: 20231008
  4. DILTIAZEM [Concomitant]
     Active Substance: DILTIAZEM
     Dosage: 120MG

REACTIONS (4)
  - Tremor [Unknown]
  - Dizziness [Unknown]
  - Tremor [Unknown]
  - Product dose omission in error [Unknown]

NARRATIVE: CASE EVENT DATE: 20230910
